FAERS Safety Report 7046940-9 (Version None)
Quarter: 2010Q4

REPORT INFORMATION
  Report Type: 
  Country: None (occurrence: None)
  Receive Date: 20101015
  Receipt Date: 20101012
  Transmission Date: 20110411
  Serious: Yes (Hospitalization, Disabling)
  Sender: FDA-Public Use
  Company Number: FR-SANOFI-AVENTIS-2010SA060303

PATIENT
  Age: 38 Year
  Sex: Female

DRUGS (1)
  1. STILNOX [Suspect]
     Indication: DRUG DEPENDENCE
     Dosage: DOSE:1 UNIT(S)
     Route: 013

REACTIONS (6)
  - HYPOAESTHESIA [None]
  - INCORRECT ROUTE OF DRUG ADMINISTRATION [None]
  - INFLAMMATION [None]
  - INTENTIONAL DRUG MISUSE [None]
  - PAIN [None]
  - PERIPHERAL ISCHAEMIA [None]
